FAERS Safety Report 9278341 (Version 1)
Quarter: 2013Q2

REPORT INFORMATION
  Report Type: Spontaneous
  Country: US (occurrence: None)
  Receive Date: 20130506
  Receipt Date: 20130506
  Transmission Date: 20140414
  Serious: Yes (Other)
  Sender: FDA-Public Use
  Company Number: None

PATIENT
  Age: 55 Year
  Sex: Female
  Weight: 122.47 kg

DRUGS (7)
  1. LEVAQUIN [Suspect]
     Indication: SINUSITIS
     Dosage: 500 MG ONCE A DAY PO
     Route: 048
     Dates: start: 20130410, end: 20130424
  2. NEXIUM [Concomitant]
  3. HCTZ [Concomitant]
  4. ZOLOFT [Concomitant]
  5. MOBIC [Concomitant]
  6. ZYRTEC [Concomitant]
  7. ASA WITH CALCIUM [Concomitant]

REACTIONS (6)
  - Arthralgia [None]
  - Myalgia [None]
  - Tendonitis [None]
  - Arthralgia [None]
  - Impaired work ability [None]
  - Bedridden [None]
